FAERS Safety Report 7407292-5 (Version None)
Quarter: 2011Q2

REPORT INFORMATION
  Report Type: 
  Country: None (occurrence: None)
  Receive Date: 20110411
  Receipt Date: 20110331
  Transmission Date: 20111010
  Serious: Yes (Other)
  Sender: FDA-Public Use
  Company Number: PHHY2011US27605

PATIENT
  Sex: Female

DRUGS (2)
  1. ANTIBIOTICS [Concomitant]
     Indication: URINARY TRACT INFECTION
     Dosage: UNK
  2. GILENYA [Suspect]
     Indication: MULTIPLE SCLEROSIS
     Dosage: 0.5 MG, QD
     Route: 048
     Dates: start: 20110330

REACTIONS (1)
  - MALAISE [None]
